FAERS Safety Report 4429391-2 (Version None)
Quarter: 2004Q3

REPORT INFORMATION
  Report Type: 
  Country: None (occurrence: None)
  Receive Date: 20040816
  Receipt Date: 20040804
  Transmission Date: 20050211
  Serious: No
  Sender: FDA-Public Use
  Company Number: 2004-DE-04265GD

PATIENT
  Sex: Male

DRUGS (2)
  1. ASPIRIN [Suspect]
  2. DICLOFENAC (DICLOFENAC) [Suspect]

REACTIONS (3)
  - ASTHMA [None]
  - DRUG INTOLERANCE [None]
  - RHINITIS [None]
